FAERS Safety Report 8077702-1 (Version None)
Quarter: 2012Q1

REPORT INFORMATION
  Report Type: 
  Country: None (occurrence: None)
  Receive Date: 20120127
  Receipt Date: 20120123
  Transmission Date: 20120608
  Serious: Yes (Death, Hospitalization, Other)
  Sender: FDA-Public Use
  Company Number: FR-PFIZER INC-K201001429

PATIENT
  Age: 83 Year
  Sex: Female

DRUGS (6)
  1. RAMIPRIL [Suspect]
     Dosage: 1.25 MG, 1X/DAY
     Route: 048
  2. PREVISCAN [Suspect]
     Dosage: 20 MG, 1X/DAY
     Route: 048
  3. PULMICORT-100 [Suspect]
     Dosage: 400 UG, 2X/DAY
     Route: 055
  4. CORDARONE [Suspect]
     Dosage: 200 MG, 1X/DAY
     Route: 048
     Dates: start: 20090401, end: 20101001
  5. LEVOTHYROXINE SODIUM [Suspect]
     Dosage: 100 UG, 1X/DAY
     Route: 048
  6. LASIX [Suspect]
     Dosage: 40 MG, 1X/DAY
     Route: 048
     Dates: start: 20090401

REACTIONS (8)
  - NEUTROPHILIA [None]
  - LOSS OF CONSCIOUSNESS [None]
  - INTERSTITIAL LUNG DISEASE [None]
  - DYSPNOEA [None]
  - MALAISE [None]
  - NORMOCHROMIC NORMOCYTIC ANAEMIA [None]
  - LYMPHOPENIA [None]
  - ACUTE RESPIRATORY DISTRESS SYNDROME [None]
